FAERS Safety Report 19002798 (Version 1)
Quarter: 2021Q1

REPORT INFORMATION
  Report Type: Spontaneous
  Country: AR (occurrence: AR)
  Receive Date: 20210312
  Receipt Date: 20210312
  Transmission Date: 20210420
  Serious: Yes (Other)
  Sender: FDA-Public Use
  Company Number: AR-PFIZER INC-2021229393

PATIENT
  Age: 62 Year
  Sex: Female

DRUGS (1)
  1. XELJANZ XR [Suspect]
     Active Substance: TOFACITINIB CITRATE
     Indication: RHEUMATOID ARTHRITIS
     Dosage: 11 MG, DAILY
     Dates: start: 20190304

REACTIONS (5)
  - Pulmonary fibrosis [Unknown]
  - Intentional product misuse [Unknown]
  - Visual impairment [Unknown]
  - Lung disorder [Unknown]
  - Circumstance or information capable of leading to medication error [Unknown]
